FAERS Safety Report 6490518-2 (Version None)
Quarter: 2009Q4

REPORT INFORMATION
  Report Type: 
  Country: None (occurrence: None)
  Receive Date: 20091210
  Receipt Date: 20091210
  Transmission Date: 20100525
  Serious: Yes (Hospitalization, Other)
  Sender: FDA-Public Use
  Company Number: None

PATIENT
  Age: 69 Year
  Sex: Female

DRUGS (3)
  1. RAMIPRIL [Suspect]
     Indication: HYPERTENSION
     Route: 048
     Dates: start: 20040501, end: 20050901
  2. BENDROFLUAZIDE (BENDROFLUMETHIAZIDE) [Concomitant]
  3. DOXAZOSIN MESYLATE [Concomitant]

REACTIONS (5)
  - BILIARY TRACT DISORDER [None]
  - DIARRHOEA [None]
  - PANCREATIC CYST [None]
  - PANCREATITIS CHRONIC [None]
  - RASH [None]
